FAERS Safety Report 5239337-5 (Version None)
Quarter: 2007Q1

REPORT INFORMATION
  Report Type: 
  Country: None (occurrence: None)
  Receive Date: 20070216
  Receipt Date: 20070205
  Transmission Date: 20070707
  Serious: Yes (Hospitalization)
  Sender: FDA-Public Use
  Company Number: JP-BRISTOL-MYERS SQUIBB COMPANY-13680525

PATIENT
  Age: 49 Year
  Sex: Male

DRUGS (4)
  1. RESLIN [Suspect]
     Route: 048
  2. MAPROTILINE HCL [Suspect]
  3. SULPIRIDE [Suspect]
  4. AMITRIPTYLINE HCL [Suspect]

REACTIONS (3)
  - DELIRIUM [None]
  - NEUROLEPTIC MALIGNANT SYNDROME [None]
  - RENAL FAILURE ACUTE [None]
